FAERS Safety Report 9973817 (Version 1)
Quarter: 2014Q1

REPORT INFORMATION
  Report Type: Spontaneous
  Country: US (occurrence: US)
  Receive Date: 20140306
  Receipt Date: 20140306
  Transmission Date: 20141002
  Serious: No
  Sender: FDA-Public Use
  Company Number: US-TEVA-467018USA

PATIENT
  Age: 25 Year
  Sex: Female
  Weight: 75.36 kg

DRUGS (5)
  1. PARAGARD 380A [Suspect]
     Indication: CONTRACEPTION
     Route: 015
     Dates: start: 20131231, end: 20140221
  2. PARAGARD 380A [Suspect]
     Route: 015
     Dates: start: 20140221
  3. LIOTHYRONINE [Concomitant]
     Indication: HYPOTHYROIDISM
  4. LEVOTHYROXINE [Concomitant]
     Indication: HYPOTHYROIDISM
  5. CLONAZEPAM [Concomitant]
     Indication: ANXIETY

REACTIONS (1)
  - Device expulsion [Recovered/Resolved]
